FAERS Safety Report 11363297 (Version 2)
Quarter: 2015Q3

REPORT INFORMATION
  Report Type: Report from Study
  Country: US (occurrence: US)
  Receive Date: 20150811
  Receipt Date: 20150813
  Transmission Date: 20151125
  Serious: Yes (Hospitalization)
  Sender: FDA-Public Use
  Company Number: US-ASTRAZENECA-2015SE43843

PATIENT
  Age: 65 Year
  Sex: Female
  Weight: 37.2 kg

DRUGS (2)
  1. BRILINTA [Suspect]
     Active Substance: TICAGRELOR
     Indication: ANTICOAGULANT THERAPY
     Route: 048
     Dates: start: 201403
  2. BRILINTA [Suspect]
     Active Substance: TICAGRELOR
     Indication: ACUTE CORONARY SYNDROME
     Route: 048
     Dates: start: 201403

REACTIONS (11)
  - Hypotension [Recovered/Resolved]
  - Visual impairment [Not Recovered/Not Resolved]
  - Contusion [Unknown]
  - Memory impairment [Not Recovered/Not Resolved]
  - Weight decreased [Not Recovered/Not Resolved]
  - Cough [Recovered/Resolved]
  - Chest pain [Recovered/Resolved]
  - Blood pressure increased [Recovered/Resolved]
  - Aphonia [Unknown]
  - Dysphagia [Unknown]
  - Stress [Recovered/Resolved]

NARRATIVE: CASE EVENT DATE: 2014
